FAERS Safety Report 6744005-4 (Version None)
Quarter: 2010Q2

REPORT INFORMATION
  Report Type: 
  Country: None (occurrence: None)
  Receive Date: 20100527
  Receipt Date: 20100519
  Transmission Date: 20101027
  Serious: Yes (Death)
  Sender: FDA-Public Use
  Company Number: A0780807A

PATIENT
  Age: 42 Year
  Sex: Female
  Weight: 172.7 kg

DRUGS (1)
  1. AVANDIA [Suspect]
     Dosage: 8MG PER DAY
     Route: 048
     Dates: start: 20060324, end: 20070314

REACTIONS (1)
  - HYPERTENSIVE HEART DISEASE [None]
